FAERS Safety Report 16882839 (Version 2)
Quarter: 2020Q2

REPORT INFORMATION
  Report Type: Spontaneous
  Country: DE (occurrence: DE)
  Receive Date: 20191004
  Receipt Date: 20200520
  Transmission Date: 20200713
  Serious: Yes (Death, Other)
  Sender: FDA-Public Use
  Company Number: DE-SUN PHARMACEUTICAL INDUSTRIES LTD-2019RR-222354

PATIENT
  Age: 75 Year
  Sex: Male
  Weight: 95 kg

DRUGS (12)
  1. BISOPROLOL 5MG [Concomitant]
     Indication: HYPERTENSION
     Dosage: 1/2-0-1/2
     Route: 065
  2. METFORMIN [Concomitant]
     Active Substance: METFORMIN HYDROCHLORIDE
     Indication: TYPE 2 DIABETES MELLITUS
     Dosage: 1/2-0-1/2
     Route: 065
  3. RAMIPRIL 5MG [Concomitant]
     Active Substance: RAMIPRIL
     Indication: HYPERTENSION
     Dosage: 2-0-1
     Route: 065
  4. INDAPAMID 1.5MG [Concomitant]
     Indication: HYPERTENSION
     Dosage: 1-0-0
     Route: 065
  5. PARACETAMOL [Concomitant]
     Active Substance: ACETAMINOPHEN
     Indication: PRODUCT USED FOR UNKNOWN INDICATION
     Dosage: ()
     Route: 065
  6. NOVALGIN [Concomitant]
     Indication: PRODUCT USED FOR UNKNOWN INDICATION
     Dosage: ()
     Route: 065
  7. HUMALOG [Concomitant]
     Active Substance: INSULIN LISPRO
     Indication: TYPE 2 DIABETES MELLITUS
     Dosage: NACH BZ/KE ()
     Route: 065
  8. FUROSEMID 40MG [Concomitant]
     Indication: HYPERTENSION
     Dosage: 1-1/2-0
     Route: 065
  9. LEVEMIR [Concomitant]
     Active Substance: INSULIN DETEMIR
     Indication: TYPE 2 DIABETES MELLITUS
     Dosage: UNK
     Route: 065
  10. ASS 100 [Concomitant]
     Active Substance: ASPIRIN
     Indication: HYPERTENSION
     Dosage: 0-1-0
     Route: 065
  11. CIPROFLOXACIN. [Suspect]
     Active Substance: CIPROFLOXACIN
     Indication: LABORATORY TEST ABNORMAL
     Dosage: 1-0-1
     Route: 065
     Dates: start: 20190708, end: 20190709
  12. SPIRONOLACTON 50 MG [Concomitant]
     Active Substance: SPIRONOLACTONE
     Indication: HYPERTENSION
     Dosage: 1-0-0 ()
     Route: 065

REACTIONS (6)
  - Shock [Unknown]
  - Ventricular fibrillation [Unknown]
  - Pharyngeal swelling [Unknown]
  - Cardiac arrest [Fatal]
  - Livedo reticularis [Unknown]
  - Loss of consciousness [Unknown]

NARRATIVE: CASE EVENT DATE: 20190709
